FAERS Safety Report 24242189 (Version 3)
Quarter: 2024Q3

REPORT INFORMATION
  Report Type: Report from Study
  Country: US (occurrence: US)
  Receive Date: 20240823
  Receipt Date: 20240905
  Transmission Date: 20241016
  Serious: Yes (Other)
  Sender: ROCHE
  Company Number: US-ROCHE-10000055489

PATIENT
  Sex: Female

DRUGS (1)
  1. MYCOPHENOLATE MOFETIL [Suspect]
     Active Substance: MYCOPHENOLATE MOFETIL
     Indication: Rheumatoid arthritis
     Dosage: 2 TABS TWICE DAILY
     Route: 048

REACTIONS (4)
  - Neoplasm malignant [Unknown]
  - Cardiac disorder [Unknown]
  - Lung disorder [Unknown]
  - Off label use [Unknown]
